FAERS Safety Report 9169200 (Version 2)
Quarter: 2013Q1

REPORT INFORMATION
  Report Type: Report from Study
  Country: US (occurrence: US)
  Receive Date: 20130318
  Receipt Date: 20130328
  Transmission Date: 20140127
  Serious: Yes (Other)
  Sender: FDA-Public Use
  Company Number: US-ROCHE-1199542

PATIENT
  Sex: Female

DRUGS (2)
  1. HERCEPTIN [Suspect]
     Indication: BREAST CANCER
     Route: 042
     Dates: start: 20120812
  2. HERCEPTIN [Suspect]
     Route: 042
     Dates: start: 201302

REACTIONS (2)
  - Angina pectoris [Unknown]
  - Malaise [Unknown]
